FAERS Safety Report 15832934 (Version 1)
Quarter: 2019Q1

REPORT INFORMATION
  Report Type: Spontaneous
  Country: US (occurrence: US)
  Receive Date: 20190116
  Receipt Date: 20190116
  Transmission Date: 20190417
  Serious: Yes (Disabling)
  Sender: FDA-Public Use
  Company Number: None

PATIENT
  Age: 63 Year
  Sex: Female
  Weight: 65.25 kg

DRUGS (6)
  1. ESTRADIOL. [Concomitant]
     Active Substance: ESTRADIOL
  2. AIMOVIG [Suspect]
     Active Substance: ERENUMAB-AOOE
     Indication: MIGRAINE
     Dosage: ?          OTHER FREQUENCY:MONTHLY;?
     Route: 030
     Dates: start: 20181008, end: 20181112
  3. DIAZEPAM. [Concomitant]
     Active Substance: DIAZEPAM
  4. ZOMIG [Concomitant]
     Active Substance: ZOLMITRIPTAN
  5. FIORINAL [Concomitant]
     Active Substance: ASPIRIN\BUTALBITAL\CAFFEINE
  6. MAGNESIUM [Concomitant]
     Active Substance: MAGNESIUM

REACTIONS (13)
  - Nausea [None]
  - Hallucination [None]
  - Suicidal ideation [None]
  - Vitreous floaters [None]
  - Ear discomfort [None]
  - Arthralgia [None]
  - Palpitations [None]
  - Alopecia [None]
  - Hypertension [None]
  - Tinnitus [None]
  - Fatigue [None]
  - Anger [None]
  - Abdominal pain [None]

NARRATIVE: CASE EVENT DATE: 20181112
